FAERS Safety Report 11049415 (Version 1)
Quarter: 2015Q2

REPORT INFORMATION
  Report Type: Spontaneous
  Country: US (occurrence: US)
  Receive Date: 20150420
  Receipt Date: 20150420
  Transmission Date: 20150821
  Serious: No
  Sender: FDA-Public Use
  Company Number: US-PFIZER INC-2015128153

PATIENT

DRUGS (2)
  1. LYRICA [Suspect]
     Active Substance: PREGABALIN
     Dosage: UNK, 3X/DAY
  2. GABAPENTIN. [Suspect]
     Active Substance: GABAPENTIN
     Indication: NEURALGIA
     Dosage: 2400 MG, DAILY

REACTIONS (6)
  - Headache [Unknown]
  - Nasal oedema [Unknown]
  - Flushing [Unknown]
  - Erythema [Unknown]
  - Vision blurred [Unknown]
  - Dizziness [Unknown]
